FAERS Safety Report 16660650 (Version 1)
Quarter: 2019Q3

REPORT INFORMATION
  Report Type: Spontaneous
  Country: US (occurrence: US)
  Receive Date: 20190802
  Receipt Date: 20190802
  Transmission Date: 20191004
  Serious: Yes (Other)
  Sender: FDA-Public Use
  Company Number: US-JNJFOC-20190741103

PATIENT
  Sex: Female

DRUGS (17)
  1. SERTRALINE [Concomitant]
     Active Substance: SERTRALINE HYDROCHLORIDE
     Route: 065
  2. ZYRTEC [Concomitant]
     Active Substance: CETIRIZINE HYDROCHLORIDE
  3. VITAMIN D3 [Concomitant]
     Active Substance: CHOLECALCIFEROL
     Route: 065
  4. B COMPLEX                          /00322001/ [Concomitant]
     Active Substance: CALCIUM PANTOTHENATE\CYANOCOBALAMIN\NIACINAMIDE\PYRIDOXINE HYDROCHLORIDE\RIBOFLAVIN\THIAMINE HYDROCHLORIDE
     Route: 065
  5. ZINC. [Concomitant]
     Active Substance: ZINC
     Route: 065
  6. CANNABIS [Concomitant]
     Active Substance: CANNABIS SATIVA SUBSP. INDICA TOP
     Indication: MUSCLE SPASMS
  7. LIALDA [Concomitant]
     Active Substance: MESALAMINE
     Route: 065
  8. MESALAMINE. [Concomitant]
     Active Substance: MESALAMINE
     Indication: COLITIS ULCERATIVE
     Dosage: MESALAMINE TBEC -2-4 PILLS
     Route: 065
  9. MAGNESIUM                          /00454301/ [Concomitant]
     Route: 065
  10. PROBIOTIC                          /06395501/ [Concomitant]
     Active Substance: BIFIDOBACTERIUM ANIMALIS LACTIS
     Route: 065
  11. REMICADE [Suspect]
     Active Substance: INFLIXIMAB
     Indication: COLITIS ULCERATIVE
     Route: 042
     Dates: start: 2017, end: 201906
  12. PREDNISONE. [Concomitant]
     Active Substance: PREDNISONE
     Indication: COLITIS ULCERATIVE
     Route: 065
  13. ROPINIROLE. [Concomitant]
     Active Substance: ROPINIROLE
     Dosage: 0.5 UNITS UNSPECIFIED
     Route: 065
  14. VITAMIN A                          /00056001/ [Concomitant]
     Active Substance: RETINOL
     Route: 065
  15. CANNABIS [Concomitant]
     Active Substance: CANNABIS SATIVA SUBSP. INDICA TOP
     Indication: MIGRAINE
  16. IRON [Concomitant]
     Active Substance: IRON
     Route: 065
  17. CANNABIS [Concomitant]
     Active Substance: CANNABIS SATIVA SUBSP. INDICA TOP
     Indication: PAIN
     Dosage: AS INHALATION AND SUBLINGUAL
     Route: 065

REACTIONS (3)
  - Colitis ulcerative [Not Recovered/Not Resolved]
  - Intervertebral disc degeneration [Not Recovered/Not Resolved]
  - Antibody test positive [Not Recovered/Not Resolved]

NARRATIVE: CASE EVENT DATE: 2019
